FAERS Safety Report 7438475-6 (Version None)
Quarter: 2011Q2

REPORT INFORMATION
  Report Type: 
  Country: None (occurrence: None)
  Receive Date: 20110418
  Receipt Date: 20090814
  Transmission Date: 20111010
  Serious: Yes (Hospitalization)
  Sender: FDA-Public Use
  Company Number: 2009SP020214

PATIENT
  Age: 33 Year
  Sex: Female

DRUGS (3)
  1. FOLLISTIM AQ [Suspect]
     Indication: OVULATION INDUCTION
     Dosage: 225 IU;QD;SC
     Route: 058
     Dates: start: 20090611, end: 20090616
  2. GONADORELIN INJ [Suspect]
     Indication: OVULATION INDUCTION
     Dosage: 1 DF;QD;SC ; 0.5 DF;QD;SC
     Route: 058
     Dates: start: 20090611, end: 20090616
  3. GONADORELIN INJ [Suspect]
     Indication: OVULATION INDUCTION
     Dosage: 1 DF;QD;SC ; 0.5 DF;QD;SC
     Route: 058
     Dates: start: 20090501, end: 20090611

REACTIONS (5)
  - GASTROINTESTINAL MUCOSAL DISORDER [None]
  - GASTROINTESTINAL ANGIODYSPLASIA [None]
  - OESOPHAGITIS [None]
  - TACHYCARDIA [None]
  - ANAEMIA MACROCYTIC [None]
